FAERS Safety Report 11524314 (Version 1)
Quarter: 2015Q3

REPORT INFORMATION
  Report Type: Spontaneous
  Country: AR (occurrence: AR)
  Receive Date: 20150918
  Receipt Date: 20150918
  Transmission Date: 20151125
  Serious: Yes (Death, Other)
  Sender: FDA-Public Use
  Company Number: AR-TEVA-593383ISR

PATIENT
  Sex: Female

DRUGS (3)
  1. VALPEX [Suspect]
     Active Substance: DONEPEZIL
     Indication: MEMORY IMPAIRMENT
  2. ALPLAX [Concomitant]
     Route: 048
  3. DICLOFENAC [Concomitant]
     Active Substance: DICLOFENAC
     Indication: ARTHRALGIA
     Dosage: SELF-MEDICATED

REACTIONS (1)
  - Haemorrhagic stroke [Fatal]

NARRATIVE: CASE EVENT DATE: 2015
